FAERS Safety Report 7645080-5 (Version None)
Quarter: 2011Q3

REPORT INFORMATION
  Report Type: 
  Country: None (occurrence: None)
  Receive Date: 20110729
  Receipt Date: 20110725
  Transmission Date: 20111222
  Serious: Yes (Death, Hospitalization, Other)
  Sender: FDA-Public Use
  Company Number: PHHY2011JP63612

PATIENT
  Sex: Female

DRUGS (5)
  1. ZOLEDRONIC ACID [Suspect]
     Indication: METASTASES TO BONE
     Route: 041
  2. TRASTUZUMAB [Concomitant]
  3. TEGAFUR [Concomitant]
  4. TS 1 [Concomitant]
  5. VINORELBINE [Concomitant]

REACTIONS (5)
  - PURULENCE [None]
  - LEUKOPENIA [None]
  - GENERAL PHYSICAL HEALTH DETERIORATION [None]
  - HAEMORRHAGE [None]
  - INFECTED SKIN ULCER [None]
